FAERS Safety Report 16658877 (Version 2)
Quarter: 2019Q3

REPORT INFORMATION
  Report Type: Spontaneous
  Country: DE (occurrence: DE)
  Receive Date: 20190801
  Receipt Date: 20190830
  Transmission Date: 20191004
  Serious: Yes (Hospitalization)
  Sender: FDA-Public Use
  Company Number: PHHY2019DE177246

PATIENT
  Sex: Male

DRUGS (3)
  1. DEXAGENT OPHTAL [Suspect]
     Active Substance: DEXAMETHASONE\GENTAMICIN SULFATE
     Indication: ABNORMAL SENSATION IN EYE
     Dosage: UNK
     Route: 065
     Dates: start: 20190310
  2. DEXAGENT OPHTAL [Suspect]
     Active Substance: DEXAMETHASONE\GENTAMICIN SULFATE
     Indication: HORDEOLUM
  3. AZOPT [Suspect]
     Active Substance: BRINZOLAMIDE
     Indication: PRODUCT USED FOR UNKNOWN INDICATION
     Dosage: 1 GTT, BID
     Route: 065

REACTIONS (9)
  - Swollen tear duct [Not Recovered/Not Resolved]
  - Hordeolum [Unknown]
  - Drug intolerance [Unknown]
  - Eye irritation [Unknown]
  - Swelling of eyelid [Unknown]
  - Lacrimation increased [Unknown]
  - Abnormal sensation in eye [Unknown]
  - Eye pain [Unknown]
  - Concomitant disease aggravated [Unknown]

NARRATIVE: CASE EVENT DATE: 20190310
